FAERS Safety Report 8991825 (Version 1)
Quarter: 2012Q4

REPORT INFORMATION
  Report Type: 
  Country: US (occurrence: US)
  Receive Date: 20121231
  Receipt Date: 20121231
  Transmission Date: 20130627
  Serious: Yes (Other)
  Sender: FDA-Public Use
  Company Number: CHPA2012US025833

PATIENT
  Age: 31 Year
  Sex: Female

DRUGS (7)
  1. EXCEDRIN MIGRAINE [Suspect]
     Indication: MIGRAINE
     Dosage: 9 to 12 pills daily
     Route: 048
     Dates: start: 1998, end: 20120430
  2. PROZAC [Concomitant]
  3. PROTRIPTYLINE [Concomitant]
  4. WELLBUTRIN [Concomitant]
  5. EFEXOR XR [Concomitant]
  6. IMITREX ^CERENEX^ [Concomitant]
  7. DRUG THERAPY NOS [Concomitant]
     Indication: CONVULSION

REACTIONS (8)
  - Drug dependence [Recovered/Resolved]
  - Migraine [Recovered/Resolved]
  - Medication overuse headache [Recovered/Resolved]
  - Headache [Recovered/Resolved]
  - Activities of daily living impaired [Recovered/Resolved]
  - Incorrect drug administration duration [Unknown]
  - Incorrect dose administered [Unknown]
  - Overdose [Unknown]
